FAERS Safety Report 25627460 (Version 2)
Quarter: 2025Q3

REPORT INFORMATION
  Report Type: Report from Study
  Country: US (occurrence: US)
  Receive Date: 20250731
  Receipt Date: 20250923
  Transmission Date: 20251021
  Serious: Yes (Hospitalization)
  Sender: SANOFI AVENTIS
  Company Number: US-SA-2025SA221222

PATIENT
  Age: 84 Year
  Sex: Male

DRUGS (3)
  1. DUPILUMAB [Suspect]
     Active Substance: DUPILUMAB
     Indication: Dermatitis atopic
     Dosage: 300 MG, QOW
     Route: 058
     Dates: end: 202507
  2. BRILINTA [Concomitant]
     Active Substance: TICAGRELOR
     Indication: Cardiac disorder
  3. BRILINTA [Concomitant]
     Active Substance: TICAGRELOR

REACTIONS (3)
  - Road traffic accident [Unknown]
  - Multiple injuries [Unknown]
  - Injection site pain [Recovered/Resolved]

NARRATIVE: CASE EVENT DATE: 20250601
